FAERS Safety Report 4508035-5 (Version None)
Quarter: 2004Q4

REPORT INFORMATION
  Report Type: 
  Country: None (occurrence: None)
  Receive Date: 20041118
  Receipt Date: 20041108
  Transmission Date: 20050328
  Serious: Yes (Hospitalization)
  Sender: FDA-Public Use
  Company Number: 2004PK01913

PATIENT
  Age: 48 Year
  Sex: Female
  Weight: 103 kg

DRUGS (6)
  1. SEROQUEL [Suspect]
     Dosage: 50 MG DAILY PO
     Route: 048
     Dates: start: 20040810, end: 20040811
  2. SEROQUEL [Suspect]
     Dosage: 100 MG DAILY PO
     Route: 048
     Dates: start: 20040812, end: 20040823
  3. SEROQUEL [Suspect]
     Dosage: 600 MG DAILY PO
     Route: 048
     Dates: start: 20040824, end: 20040913
  4. SEROQUEL [Suspect]
     Dosage: 450 MG DAILY PO
     Route: 048
     Dates: start: 20040914
  5. MELNEURIN [Suspect]
     Dosage: 25 MG DAILY PO
     Route: 048
     Dates: start: 20040727, end: 20040913
  6. AKINETON [Concomitant]

REACTIONS (6)
  - ELECTROCARDIOGRAM QT CORRECTED INTERVAL PROLONGED [None]
  - FIBRIN D DIMER INCREASED [None]
  - HYPERTHERMIA [None]
  - HYPOAESTHESIA [None]
  - PHLEBOTHROMBOSIS [None]
  - SENSATION OF HEAVINESS [None]
